FAERS Safety Report 14278197 (Version 1)
Quarter: 2017Q4

REPORT INFORMATION
  Report Type: Spontaneous
  Country: US (occurrence: US)
  Receive Date: 20171211
  Receipt Date: 20171211
  Transmission Date: 20180321
  Serious: Yes (Other)
  Sender: FDA-Public Use
  Company Number: US-OTSUKA-DJ20104266

PATIENT

DRUGS (5)
  1. ANTIDEPRESSANT [Concomitant]
     Active Substance: UNSPECIFIED INGREDIENT
     Route: 065
  2. COGENTIN [Suspect]
     Active Substance: BENZTROPINE MESYLATE
     Route: 065
  3. ABILIFY [Suspect]
     Active Substance: ARIPIPRAZOLE
     Route: 065
  4. ABILIFY [Suspect]
     Active Substance: ARIPIPRAZOLE
     Route: 065
  5. ABILIFY [Suspect]
     Active Substance: ARIPIPRAZOLE
     Route: 065

REACTIONS (4)
  - Dyskinesia [Unknown]
  - Akathisia [Recovering/Resolving]
  - Dysphagia [Recovered/Resolved]
  - Dyspnoea [Recovered/Resolved]
